FAERS Safety Report 7267174-9 (Version None)
Quarter: 2011Q1

REPORT INFORMATION
  Report Type: 
  Country: None (occurrence: None)
  Receive Date: 20110201
  Receipt Date: 20110118
  Transmission Date: 20110831
  Serious: Yes (Hospitalization)
  Sender: FDA-Public Use
  Company Number: US-RANBAXY-2011US-41373

PATIENT
  Age: 79 Year
  Sex: Male

DRUGS (3)
  1. GLIMEPIRIDE [Suspect]
     Indication: TYPE 2 DIABETES MELLITUS
     Dosage: 1 MG, UNK
     Route: 048
  2. CIPROFLOXACIN [Suspect]
     Indication: DIVERTICULITIS
     Dosage: UNK, UNK
     Route: 065
  3. METRONIDAZOLE [Suspect]
     Indication: DIVERTICULITIS
     Dosage: UNK, UNK
     Route: 065

REACTIONS (2)
  - DRUG INTERACTION [None]
  - HYPOGLYCAEMIA [None]
